FAERS Safety Report 25318100 (Version 1)
Quarter: 2025Q2

REPORT INFORMATION
  Report Type: Spontaneous
  Country: US (occurrence: US)
  Receive Date: 20250515
  Receipt Date: 20250515
  Transmission Date: 20250717
  Serious: No
  Sender: COREPHARMA LLC
  Company Number: US-CorePharma LLC-2176701

PATIENT

DRUGS (1)
  1. SUMATRIPTAN SUCCINATE [Suspect]
     Active Substance: SUMATRIPTAN SUCCINATE
     Indication: Product used for unknown indication

REACTIONS (4)
  - Tension headache [Unknown]
  - Condition aggravated [Unknown]
  - Pain [Unknown]
  - Muscle tightness [Unknown]
